FAERS Safety Report 9681630 (Version 2)
Quarter: 2013Q4

REPORT INFORMATION
  Report Type: Report from Study
  Country: GB (occurrence: GB)
  Receive Date: 20131111
  Receipt Date: 20131111
  Transmission Date: 20140711
  Serious: Yes (Hospitalization)
  Sender: FDA-Public Use
  Company Number: GB-PFIZER INC-2011038193

PATIENT
  Age: 52 Year
  Sex: Male

DRUGS (8)
  1. SUTENT [Suspect]
     Indication: NEOPLASM MALIGNANT
     Dosage: 25 MG, UNK
     Dates: start: 20101028
  2. CISPLATIN [Suspect]
     Indication: NEOPLASM MALIGNANT
     Dosage: UNK
     Route: 042
     Dates: start: 20101028
  3. GEMCITABINE [Suspect]
     Indication: NEOPLASM MALIGNANT
     Dosage: UNK
     Route: 042
     Dates: start: 20101028
  4. PARACETAMOL [Concomitant]
     Dosage: 4 G, UNK
     Route: 048
     Dates: start: 2010
  5. DICLOFENAC [Concomitant]
     Dosage: 150 MG, UNK
     Route: 048
     Dates: start: 2010
  6. OMEPRAZOLE [Concomitant]
     Dosage: 40 MG, UNK
     Route: 048
     Dates: start: 20101203
  7. MST [Concomitant]
     Dosage: 40 MG, UNK
     Route: 048
     Dates: start: 2010
  8. TRIMETHOPRIM [Concomitant]
     Dosage: 200 MG, UNK
     Route: 048
     Dates: start: 20101021, end: 20110217

REACTIONS (1)
  - Infection [Recovered/Resolved]
